FAERS Safety Report 8479931-1 (Version None)
Quarter: 2012Q2

REPORT INFORMATION
  Report Type: 
  Country: None (occurrence: None)
  Receive Date: 20120629
  Receipt Date: 20120622
  Transmission Date: 20120825
  Serious: Yes (Other)
  Sender: FDA-Public Use
  Company Number: US-US-EMD SERONO, INC.-7141038

PATIENT
  Sex: Female
  Weight: 79 kg

DRUGS (2)
  1. REBIF [Suspect]
     Indication: MULTIPLE SCLEROSIS
     Route: 058
     Dates: start: 20101004
  2. REBIF [Suspect]
     Route: 058

REACTIONS (5)
  - MUSCULAR WEAKNESS [None]
  - LEUKOPENIA [None]
  - FOOT FRACTURE [None]
  - FALL [None]
  - LIGAMENT SPRAIN [None]
